FAERS Safety Report 23010487 (Version 3)
Quarter: 2023Q4

REPORT INFORMATION
  Report Type: Report from Study
  Country: US (occurrence: US)
  Receive Date: 20230929
  Receipt Date: 20231129
  Transmission Date: 20240109
  Serious: Yes (Hospitalization)
  Sender: FDA-Public Use
  Company Number: US-SAREPTA THERAPEUTICS INC.-SRP2023-003827

PATIENT
  Age: 7 Year
  Sex: Male
  Weight: 27.8 kg

DRUGS (26)
  1. PLACEBO [Suspect]
     Active Substance: UNSPECIFIED INGREDIENT
     Indication: Duchenne muscular dystrophy
     Dosage: 290 MILLILITER, SINGLE
     Route: 042
     Dates: start: 20230719, end: 20230719
  2. DELANDISTROGENE MOXEPARVOVEC [Suspect]
     Active Substance: DELANDISTROGENE MOXEPARVOVEC
     Indication: Duchenne muscular dystrophy
     Dosage: 1.33 ? 10^14VG/KG, SINGLE
     Route: 042
     Dates: start: 20220723, end: 20220723
  3. PREDNISOLONE [Concomitant]
     Active Substance: PREDNISOLONE
     Indication: Duchenne muscular dystrophy
     Dosage: 7.4 MILLILITER, QD
     Route: 048
     Dates: start: 20230913
  4. LIDOCAINE [Concomitant]
     Active Substance: LIDOCAINE
     Indication: Prophylaxis
     Dosage: 2.5 PERCENT, CREAM, AS NECESSARY
     Route: 061
     Dates: start: 20220628
  5. PRILOCAINE [Concomitant]
     Active Substance: PRILOCAINE
     Indication: Prophylaxis
     Dosage: 2.5 PERCENT, CREAM, AS NECESSARY
     Route: 061
     Dates: start: 20220628
  6. ACETAMINOPHEN [Concomitant]
     Active Substance: ACETAMINOPHEN
     Indication: Rhabdomyolysis
     Dosage: 325 MILLIGRAM, ONCE
     Route: 048
     Dates: start: 20220625, end: 20220625
  7. ACETAMINOPHEN [Concomitant]
     Active Substance: ACETAMINOPHEN
     Indication: COVID-19
     Dosage: 240 MILLIGRAM, EVERY 4 HOURS PRN TEMP}38 CELCIUS
     Route: 048
     Dates: start: 20220625, end: 20220627
  8. ACETAMINOPHEN [Concomitant]
     Active Substance: ACETAMINOPHEN
     Dosage: 325 MILLIGRAM, ONCE
     Route: 048
     Dates: start: 20221210, end: 20221210
  9. ACETAMINOPHEN [Concomitant]
     Active Substance: ACETAMINOPHEN
     Dosage: 160 MG/5 ML, 400 MILLIGRAM, ONCE
     Route: 048
     Dates: start: 20221210, end: 20221210
  10. ACETAMINOPHEN [Concomitant]
     Active Substance: ACETAMINOPHEN
     Dosage: 250 MG/5 ML, 400 MILLIGRAM, ONCE
     Route: 048
     Dates: start: 20221211, end: 20221211
  11. ACETAMINOPHEN [Concomitant]
     Active Substance: ACETAMINOPHEN
     Dosage: 10 MILLILITER, 160MG/5 ML, 10 MILLILITER, EVERY 3.5 HOURS
     Route: 048
     Dates: start: 20230120, end: 20230120
  12. DEXTROSE\SODIUM CHLORIDE [Concomitant]
     Active Substance: DEXTROSE\SODIUM CHLORIDE
     Indication: Rhabdomyolysis
     Dosage: 5/9 PERCENT, CONTINUOS
     Route: 042
     Dates: start: 20220625, end: 20220627
  13. DEXTROSE\SODIUM CHLORIDE [Concomitant]
     Active Substance: DEXTROSE\SODIUM CHLORIDE
     Dosage: 130 ML/HR, CONTINUOUS
     Route: 042
     Dates: start: 20221210, end: 20221211
  14. SODIUM CHLORIDE [Concomitant]
     Active Substance: SODIUM CHLORIDE
     Indication: Rhabdomyolysis
     Dosage: 488 MILLILITER, ONCE AT A RATE OF 976 ML/HR OVER 30 MINUTES
     Route: 042
     Dates: start: 20220625, end: 20220625
  15. SODIUM CHLORIDE [Concomitant]
     Active Substance: SODIUM CHLORIDE
     Dosage: 496 MILLILITER, BID
     Route: 042
     Dates: start: 20221210, end: 20221210
  16. SODIUM CHLORIDE [Concomitant]
     Active Substance: SODIUM CHLORIDE
     Dosage: 130 ML/HR, CONTINUOUS
     Route: 042
     Dates: start: 20221210, end: 20221210
  17. TYLENOL [Concomitant]
     Active Substance: ACETAMINOPHEN
     Indication: Nasopharyngitis
     Dosage: 160 MG/5 ML,10 MILLILITER, Q4H
     Route: 048
     Dates: start: 20220915, end: 20220915
  18. IBUPROFEN [Concomitant]
     Active Substance: IBUPROFEN
     Indication: Nasopharyngitis
     Dosage: 200 MG/10 ML,10 MILLILITER, ONCE
     Route: 048
     Dates: start: 20220916, end: 20220916
  19. BROMPHENIRAMINE [Concomitant]
     Active Substance: BROMPHENIRAMINE
     Indication: Viral infection
     Dosage: 5 MILLILITER, BID
     Route: 048
     Dates: start: 202211, end: 202211
  20. BROMPHENIRAMINE [Concomitant]
     Active Substance: BROMPHENIRAMINE
     Indication: Nasopharyngitis
     Dosage: 5 MILLILITER, BID
     Route: 048
     Dates: start: 20230828, end: 20230901
  21. MOTRIN PLATINUM MUSCLE AND BODY [Concomitant]
     Indication: Arthralgia
     Dosage: 10 MILLILITER, ONCE
     Route: 048
     Dates: start: 20221130, end: 20221130
  22. MOTRIN PLATINUM MUSCLE AND BODY [Concomitant]
     Indication: Rhabdomyolysis
     Dosage: 100 MG/5 ML, 250 MILLIGRAM, ONCE
     Route: 048
     Dates: start: 20221210, end: 20221210
  23. MOTRIN PLATINUM MUSCLE AND BODY [Concomitant]
     Indication: COVID-19
     Dosage: 10 MILLILITER, EVERY 3.5 HOURS
     Route: 048
     Dates: start: 20230120, end: 20230120
  24. CEFTRIAXONE SODIUM [Concomitant]
     Active Substance: CEFTRIAXONE SODIUM
     Indication: Rhabdomyolysis
     Dosage: 1240 MILLIGRAM ONCE
     Route: 042
     Dates: start: 20221210, end: 20221210
  25. TAMFLU [Concomitant]
     Indication: Rhabdomyolysis
     Dosage: 6MG/ML, 60 MILLIGRAM, BID
     Route: 048
     Dates: start: 20221210, end: 20221213
  26. ZOFRAN [Concomitant]
     Active Substance: ONDANSETRON HYDROCHLORIDE
     Indication: Rhabdomyolysis
     Dosage: 4 MILLIGRAM, ONCE
     Route: 042
     Dates: start: 20221211, end: 20221211

REACTIONS (1)
  - Rhabdomyolysis [Recovered/Resolved]

NARRATIVE: CASE EVENT DATE: 20230922
